FAERS Safety Report 12775970 (Version 3)
Quarter: 2017Q3

REPORT INFORMATION
  Report Type: Report from Study
  Country: CO (occurrence: CO)
  Receive Date: 20160923
  Receipt Date: 20170726
  Transmission Date: 20171127
  Serious: Yes (Hospitalization)
  Sender: FDA-Public Use
  Company Number: PHHY2016CO124657

PATIENT
  Age: 46 Year
  Sex: Male
  Weight: 75 kg

DRUGS (1)
  1. TASIGNA [Suspect]
     Active Substance: NILOTINIB
     Indication: CHRONIC MYELOID LEUKAEMIA
     Dosage: 200 MG, QID (FOUR TIMES A DAY)
     Route: 048
     Dates: start: 20150727

REACTIONS (16)
  - Abdominal pain upper [Unknown]
  - Weight decreased [Unknown]
  - Arthralgia [Unknown]
  - Diarrhoea [Unknown]
  - Incorrect drug administration duration [Unknown]
  - Blast cell count increased [Unknown]
  - Sleep disorder [Unknown]
  - Fatigue [Unknown]
  - Myalgia [Unknown]
  - Headache [Unknown]
  - Disease susceptibility [Unknown]
  - White blood cell count decreased [Unknown]
  - Dehydration [Unknown]
  - Decreased appetite [Unknown]
  - Depression [Unknown]
  - Swelling face [Unknown]

NARRATIVE: CASE EVENT DATE: 20150727
